FAERS Safety Report 8605469-4 (Version None)
Quarter: 2012Q3

REPORT INFORMATION
  Report Type: 
  Country: None (occurrence: None)
  Receive Date: 20120820
  Receipt Date: 20120814
  Transmission Date: 20120928
  Serious: Yes (Hospitalization)
  Sender: FDA-Public Use
  Company Number: US-AMGEN-USASP2012047198

PATIENT
  Age: 69 Year

DRUGS (13)
  1. EPOGEN [Suspect]
     Dosage: 11000 IU, UNK
     Route: 042
     Dates: start: 20120514, end: 20120521
  2. LEFLUNOMIDE [Concomitant]
     Dosage: 20 MG, QD
     Dates: start: 20120105
  3. ARANESP [Suspect]
     Dosage: 152 MG, UNK
     Dates: start: 20120222
  4. EPOGEN [Suspect]
     Indication: NEOPLASM MALIGNANT
     Dosage: 26000 IU, UNK
     Route: 042
     Dates: start: 20120711, end: 20120716
  5. EPOGEN [Suspect]
     Dosage: 21000 IU, UNK
     Route: 042
     Dates: start: 20120615, end: 20120710
  6. ARANESP [Suspect]
     Indication: RENAL FAILURE
     Dosage: 200 MG, UNK
     Dates: start: 20120723
  7. ARANESP [Suspect]
     Dosage: 150 MG, UNK
     Dates: start: 20120112
  8. EPOGEN [Suspect]
     Dosage: 16000 IU, UNK
     Route: 042
     Dates: start: 20120604, end: 20120611
  9. ARANESP [Suspect]
     Dosage: 151 MG, UNK
     Dates: start: 20120201
  10. ARANESP [Suspect]
     Dosage: 153 MG, UNK
     Dates: start: 20120313
  11. ARANESP [Suspect]
     Dosage: 154 MG, UNK
     Dates: start: 20120405
  12. ALLOPURINOL [Concomitant]
     Dosage: 150 MG, QD
     Dates: start: 20120106
  13. EPOGEN [Suspect]
     Dosage: 10000 IU, UNK
     Route: 042
     Dates: start: 20120420, end: 20120503

REACTIONS (1)
  - THERAPEUTIC RESPONSE DECREASED [None]
